FAERS Safety Report 8983828 (Version 4)
Quarter: 2013Q2

REPORT INFORMATION
  Report Type: Report from Study
  Country: BR (occurrence: BR)
  Receive Date: 20121224
  Receipt Date: 20130423
  Transmission Date: 20140414
  Serious: Yes (Other)
  Sender: FDA-Public Use
  Company Number: BR-ROCHE-1171052

PATIENT
  Age: 33 Year
  Sex: Female
  Weight: 60 kg

DRUGS (5)
  1. ACTEMRA [Suspect]
     Indication: RHEUMATOID ARTHRITIS
     Route: 042
     Dates: start: 20120522
  2. ACTEMRA [Suspect]
     Route: 042
     Dates: start: 201209
  3. ACTEMRA [Suspect]
     Route: 042
     Dates: start: 201210
  4. ACTEMRA [Suspect]
     Route: 042
     Dates: start: 20130410
  5. YAZ [Concomitant]
     Indication: CONTRACEPTION

REACTIONS (3)
  - Depression [Recovered/Resolved]
  - Arthralgia [Unknown]
  - Headache [Recovered/Resolved]
